FAERS Safety Report 5650582-7 (Version None)
Quarter: 2008Q1

REPORT INFORMATION
  Report Type: 
  Country: None (occurrence: None)
  Receive Date: 20080304
  Receipt Date: 20080304
  Transmission Date: 20080703
  Serious: Yes (Hospitalization)
  Sender: FDA-Public Use
  Company Number: None

PATIENT
  Sex: Male
  Weight: 102.0593 kg

DRUGS (2)
  1. CETUXIMAB [Suspect]
     Indication: COLON CANCER METASTATIC
     Dosage: 1115MG  Q 2 WEEKS  IV DRIP
     Route: 041
     Dates: start: 20070816, end: 20080201
  2. IRINOTECAN HCL [Suspect]
     Indication: COLON CANCER METASTATIC
     Dosage: 400MG  Q 2 WEEKS  IV DRIP
     Route: 041
     Dates: start: 20070816, end: 20080201

REACTIONS (1)
  - SMALL INTESTINAL OBSTRUCTION [None]
